FAERS Safety Report 9390679 (Version 1)
Quarter: 2013Q3

REPORT INFORMATION
  Report Type: Spontaneous
  Country: GB (occurrence: GB)
  Receive Date: 20130709
  Receipt Date: 20130709
  Transmission Date: 20140515
  Serious: Yes (Other)
  Sender: FDA-Public Use
  Company Number: GB-009507513-1307GBR003192

PATIENT
  Age: 43 Year
  Sex: Male

DRUGS (3)
  1. MONTELUKAST SODIUM [Suspect]
     Dosage: 10 MG, UNK
     Route: 065
  2. FLUTICASONE PROPIONATE (+) SALMETEROL XINAFOATE [Suspect]
     Dosage: 2 PUFFS TWICE PER DAY
     Route: 055
  3. VENTOLIN (ALBUTEROL SULFATE) [Suspect]
     Dosage: 1 DF, UNK
     Route: 055

REACTIONS (6)
  - Blebitis [Unknown]
  - Diplopia [Unknown]
  - Dysaesthesia [Unknown]
  - Pigment dispersion syndrome [Unknown]
  - Tenon^s cyst [Unknown]
  - Trabeculectomy [Unknown]
